FAERS Safety Report 6818607-0 (Version None)
Quarter: 2010Q3

REPORT INFORMATION
  Report Type: 
  Country: None (occurrence: None)
  Receive Date: 20100706
  Receipt Date: 20081111
  Transmission Date: 20110219
  Serious: No
  Sender: FDA-Public Use
  Company Number: US-PFIZER INC-2008096066

PATIENT
  Sex: Female
  Weight: 71.67 kg

DRUGS (6)
  1. ZITHROMAX (CAPS) [Suspect]
     Indication: UPPER RESPIRATORY TRACT INFECTION
     Route: 048
     Dates: start: 20080201, end: 20080201
  2. AZITHROMYCIN [Suspect]
     Indication: UPPER RESPIRATORY TRACT INFECTION
  3. GENERAL NUTRIENTS [Suspect]
  4. ANTIHISTAMINES [Concomitant]
  5. HERBAL PREPARATION [Concomitant]
  6. HERBAL PREPARATION INGREDIENTS UNKNOWN [Concomitant]

REACTIONS (3)
  - ADVERSE REACTION [None]
  - MALAISE [None]
  - RASH [None]
